FAERS Safety Report 9384581 (Version 1)
Quarter: 2013Q3

REPORT INFORMATION
  Report Type: Spontaneous
  Country: US (occurrence: US)
  Receive Date: 20130705
  Receipt Date: 20130705
  Transmission Date: 20140515
  Serious: No
  Sender: FDA-Public Use
  Company Number: US-BAYER-2013-081813

PATIENT
  Sex: Male

DRUGS (3)
  1. BETASERON [Suspect]
     Dosage: 0.3 MG, QOD
     Dates: start: 201201, end: 201204
  2. INDOCIN [Concomitant]
  3. ATENOLOL [Concomitant]

REACTIONS (2)
  - Injection site pain [None]
  - Injection site erythema [None]
